FAERS Safety Report 10373932 (Version 1)
Quarter: 2014Q1

REPORT INFORMATION
  Report Type: Spontaneous
  Country: US (occurrence: None)
  Receive Date: 20140306
  Receipt Date: 20140306
  Transmission Date: 20141002
  Serious: Yes (Hospitalization)
  Sender: FDA-Public Use
  Company Number: 163-21880-13013169

PATIENT
  Age: 51 Year
  Sex: Female

DRUGS (13)
  1. REVLIMID (LENALIDOMIDE) (5 MILLIGRAM, CAPSULES) [Suspect]
     Indication: CHRONIC LYMPHOCYTIC LEUKAEMIA
     Route: 048
     Dates: start: 20121026, end: 20121214
  2. REVLIMID (LENALIDOMIDE) (5 MILLIGRAM, CAPSULES) [Suspect]
     Indication: B-CELL SMALL LYMPHOCYTIC LYMPHOMA
     Route: 048
     Dates: start: 20121026, end: 20121214
  3. OFATUMUMAB (OPATUMUMAB) [Concomitant]
     Indication: CHRONIC LYMPHOCYTIC LEUKAEMIA
     Route: 042
     Dates: start: 20121019
  4. OFATUMUMAB (OPATUMUMAB) [Concomitant]
     Indication: B-CELL SMALL LYMPHOCYTIC LYMPHOMA
     Route: 042
     Dates: start: 20121019
  5. COLACE (DOCUSATE SODIUM) [Concomitant]
  6. CYMBALTA [Concomitant]
  7. LEVOFLOXACIN (LEVOFLOXACIN) [Concomitant]
  8. METOPROLOL (METOPROLOL) [Concomitant]
  9. MULTIVITAMINS (MULTIVITAMINS) [Concomitant]
  10. OXYCODONE (OXYCODONE) [Concomitant]
  11. PANTOPRAZOLE (PANTOPRAZOLE) [Concomitant]
  12. K-DUR (POTASSIUM CHLORIDE) [Concomitant]
  13. VALACYCLOVIR (VALACICLOVIR HYDROCHLORIDE) [Concomitant]

REACTIONS (2)
  - Bile duct stone [None]
  - Biliary colic [None]
